FAERS Safety Report 13182601 (Version 1)
Quarter: 2017Q1

REPORT INFORMATION
  Report Type: Spontaneous
  Country: US (occurrence: US)
  Receive Date: 20170203
  Receipt Date: 20170203
  Transmission Date: 20170428
  Serious: No
  Sender: FDA-Public Use
  Company Number: US-PFIZER INC-2017043580

PATIENT
  Sex: Female

DRUGS (2)
  1. IBRANCE [Suspect]
     Active Substance: PALBOCICLIB
     Dosage: 2 DF, DAILY (TWO PILLS A DAY )
     Dates: start: 201502
  2. IBRANCE [Suspect]
     Active Substance: PALBOCICLIB
     Dosage: (ONE SHOT A MONTH)
     Dates: start: 201502

REACTIONS (8)
  - Exostosis [Unknown]
  - Spinal osteoarthritis [Unknown]
  - Oestrogen deficiency [Unknown]
  - Arthritis [Unknown]
  - Premature ageing [Unknown]
  - Menopausal disorder [Unknown]
  - Hot flush [Unknown]
  - Night sweats [Unknown]
